FAERS Safety Report 8774122 (Version 3)
Quarter: 2012Q4

REPORT INFORMATION
  Report Type: 
  Country: US (occurrence: US)
  Receive Date: 20120907
  Receipt Date: 20121221
  Transmission Date: 20130627
  Serious: Yes (Hospitalization)
  Sender: FDA-Public Use
  Company Number: US-BAYER-2012-090668

PATIENT
  Age: 33 Year
  Sex: Female
  Weight: 65.76 kg

DRUGS (26)
  1. YAZ [Suspect]
     Indication: PREMENSTRUAL SYNDROME
     Dosage: UNK
     Dates: start: 20080418, end: 20080509
  2. YAZ [Suspect]
     Indication: ENDOMETRIOSIS
  3. METOPROLOL [Concomitant]
  4. ASPIRIN [Concomitant]
  5. ALBUTEROL [Concomitant]
  6. VERAPAMIL [Concomitant]
  7. SIMVASTATIN [Concomitant]
  8. AVELOX [Concomitant]
  9. TRAZODONE [Concomitant]
  10. ZOLOFT [Concomitant]
  11. PERCOCET [Concomitant]
  12. PHENERGAN [PROMETHAZINE] [Concomitant]
  13. INDERAL [Concomitant]
     Dosage: 60 mg, 1 cap QD
  14. VICODIN [Concomitant]
     Dosage: 500 mg 5 mg 1 tab q  4H  prn
  15. RELPAX [Concomitant]
     Indication: HEADACHE
     Dosage: 40 mg, 1 tab prn
  16. NASONEX [Concomitant]
     Dosage: 50 50 mcg 2 sprays once a day
     Route: 045
  17. NEURONTIN [Concomitant]
     Dosage: 200 mg, 3 tab qHS (every night)
  18. REMERON [Concomitant]
     Dosage: 30 mg, 1 tab QD
  19. AMOXICILLIN [Concomitant]
     Indication: UPPER RESPIRATORY INFECTION
     Dosage: 875 mg, 1 Tab BID
     Route: 048
  20. TUSSIONEX [Concomitant]
     Dosage: 8 -10 mg q 12 H
     Route: 048
  21. IBUPROFEN [Concomitant]
     Indication: CHEST PAIN
     Dosage: 200 mg, 3 tabs TID
  22. PROVENTIL HFA [Concomitant]
     Dosage: 2 puffs qid prn
     Route: 045
  23. AUGMENTIN [Concomitant]
  24. PHENERGAN WITH CODEINE [Concomitant]
  25. CIPRO [Concomitant]
  26. FLAGYL [Concomitant]

REACTIONS (5)
  - Pulmonary embolism [Recovered/Resolved]
  - Dilatation ventricular [None]
  - Dyspnoea [Recovered/Resolved]
  - Pain [Recovered/Resolved]
  - Fear of disease [None]
